FAERS Safety Report 9940137 (Version 2)
Quarter: 2014Q1

REPORT INFORMATION
  Report Type: Report from Study
  Country: US (occurrence: US)
  Receive Date: 20140303
  Receipt Date: 20140303
  Transmission Date: 20141002
  Serious: Yes (Other)
  Sender: FDA-Public Use
  Company Number: US-ABBVIE-13P-163-1035322-00

PATIENT
  Age: 57 Year
  Sex: Female
  Weight: 80.81 kg

DRUGS (2)
  1. HUMIRA [Suspect]
     Indication: PSORIATIC ARTHROPATHY
     Route: 058
     Dates: start: 20121003
  2. HUMIRA [Suspect]
     Dates: start: 201301

REACTIONS (1)
  - Hip arthroplasty [Recovered/Resolved]
